FAERS Safety Report 25240014 (Version 1)
Quarter: 2025Q2

REPORT INFORMATION
  Report Type: Report from Study
  Country: JP (occurrence: JP)
  Receive Date: 20250425
  Receipt Date: 20250425
  Transmission Date: 20250717
  Serious: Yes (Death)
  Sender: SHIONOGI
  Company Number: JP-shionogi-202500004294

PATIENT
  Age: 57 Year
  Sex: Male
  Weight: 81 kg

DRUGS (5)
  1. CEFIDEROCOL [Suspect]
     Active Substance: CEFIDEROCOL
     Indication: Escherichia bacteraemia
     Route: 041
     Dates: start: 20241123, end: 20241123
  2. CEFIDEROCOL [Suspect]
     Active Substance: CEFIDEROCOL
     Route: 041
     Dates: start: 20241124, end: 20241124
  3. MEROPENEM [Concomitant]
     Active Substance: MEROPENEM
     Indication: Escherichia bacteraemia
     Route: 065
     Dates: start: 20241102, end: 20241122
  4. VANCOMYCIN [Concomitant]
     Active Substance: VANCOMYCIN
     Indication: Escherichia bacteraemia
     Route: 065
     Dates: start: 20241102, end: 20241116
  5. AMIKACIN SULFATE [Concomitant]
     Active Substance: AMIKACIN SULFATE
     Indication: Escherichia bacteraemia
     Route: 065
     Dates: start: 20241116, end: 20241123

REACTIONS (1)
  - Escherichia bacteraemia [Fatal]
